FAERS Safety Report 5959029-4 (Version None)
Quarter: 2008Q4

REPORT INFORMATION
  Report Type: 
  Country: None (occurrence: None)
  Receive Date: 20081118
  Receipt Date: 20081118
  Transmission Date: 20090506
  Serious: Yes (Life-Threatening)
  Sender: FDA-Public Use
  Company Number: None

PATIENT
  Age: 62 Year
  Sex: Male
  Weight: 83 kg

DRUGS (10)
  1. THYMOGLOBULIN [Suspect]
     Indication: MYELOFIBROSIS
     Dosage: 260MG IV X 1
     Route: 042
     Dates: start: 20080702
  2. THYMOGLOBULIN [Suspect]
     Indication: PANCYTOPENIA
     Dosage: 260MG IV X 1
     Route: 042
     Dates: start: 20080702
  3. DAPTOMYCIN [Concomitant]
  4. CASPOFUNGIN [Concomitant]
  5. ACYCLOVIR [Concomitant]
  6. MORPHINE [Concomitant]
  7. LANSOPRAZOLE [Concomitant]
  8. GM-CSF [Concomitant]
  9. TEMAZEPAM [Concomitant]
  10. POTASSIUM CHLORIDE [Concomitant]

REACTIONS (5)
  - BLOOD PRESSURE INCREASED [None]
  - CHILLS [None]
  - HEART RATE INCREASED [None]
  - HYPERHIDROSIS [None]
  - OXYGEN SATURATION DECREASED [None]
